FAERS Safety Report 13495602 (Version 1)
Quarter: 2017Q2

REPORT INFORMATION
  Report Type: Spontaneous
  Country: US (occurrence: US)
  Receive Date: 20170427
  Receipt Date: 20170427
  Transmission Date: 20170830
  Serious: Yes (Hospitalization)
  Sender: FDA-Public Use
  Company Number: None

PATIENT
  Age: 79 Year
  Sex: Male

DRUGS (13)
  1. ACYCLOVIR. [Concomitant]
     Active Substance: ACYCLOVIR
  2. REVLIMID [Suspect]
     Active Substance: LENALIDOMIDE
     Indication: PLASMA CELL MYELOMA
     Dosage: 5MG DAILY X 21D/28D ORAL
     Route: 048
     Dates: start: 20161102
  3. OMEPRAZOLE. [Concomitant]
     Active Substance: OMEPRAZOLE
  4. CARFILZOMIB [Concomitant]
     Active Substance: CARFILZOMIB
  5. LENALIDOMIDE [Concomitant]
     Active Substance: LENALIDOMIDE
  6. ASPIRIN. [Concomitant]
     Active Substance: ASPIRIN
  7. BACTRIM [Concomitant]
     Active Substance: SULFAMETHOXAZOLE\TRIMETHOPRIM
  8. METOPROLOL. [Concomitant]
     Active Substance: METOPROLOL
  9. MVI [Concomitant]
     Active Substance: VITAMINS
  10. DEXAMETHASONE. [Concomitant]
     Active Substance: DEXAMETHASONE
  11. ATORVASTATIN [Concomitant]
     Active Substance: ATORVASTATIN
  12. TAMSULOSIN [Concomitant]
     Active Substance: TAMSULOSIN
  13. ONDANSETRON [Concomitant]
     Active Substance: ONDANSETRON

REACTIONS (6)
  - Asthenia [None]
  - Viral upper respiratory tract infection [None]
  - Cough [None]
  - Sepsis [None]
  - Fatigue [None]
  - Confusional state [None]

NARRATIVE: CASE EVENT DATE: 20170419
